FAERS Safety Report 24044735 (Version 2)
Quarter: 2024Q3

REPORT INFORMATION
  Report Type: Spontaneous
  Country: BR (occurrence: BR)
  Receive Date: 20240703
  Receipt Date: 20240709
  Transmission Date: 20241016
  Serious: Yes (Hospitalization)
  Sender: ROCHE
  Company Number: BR-ROCHE-10000011359

PATIENT
  Age: 59 Year
  Sex: Male

DRUGS (13)
  1. TARCEVA [Suspect]
     Active Substance: ERLOTINIB HYDROCHLORIDE
     Indication: Epididymitis
     Route: 065
  2. TARCEVA [Suspect]
     Active Substance: ERLOTINIB HYDROCHLORIDE
     Indication: Headache
  3. TARCEVA [Suspect]
     Active Substance: ERLOTINIB HYDROCHLORIDE
     Indication: Hepatic cancer
  4. TARCEVA [Suspect]
     Active Substance: ERLOTINIB HYDROCHLORIDE
     Indication: Hypertension
  5. TARCEVA [Suspect]
     Active Substance: ERLOTINIB HYDROCHLORIDE
     Indication: Pyrexia
  6. SORAFENIB [Suspect]
     Active Substance: SORAFENIB
     Indication: Epididymitis
     Route: 065
  7. SORAFENIB [Suspect]
     Active Substance: SORAFENIB
     Indication: Headache
  8. SORAFENIB [Suspect]
     Active Substance: SORAFENIB
     Indication: Hepatic cancer
  9. SORAFENIB [Suspect]
     Active Substance: SORAFENIB
     Indication: Hypertension
  10. SORAFENIB [Suspect]
     Active Substance: SORAFENIB
     Indication: Pyrexia
  11. METAMIZOLE [Concomitant]
     Active Substance: METAMIZOLE
     Indication: Product used for unknown indication
  12. HOMATROPINE [Concomitant]
     Active Substance: HOMATROPINE HYDROBROMIDE
     Indication: Product used for unknown indication
  13. ENALAPRIL [Concomitant]
     Active Substance: ENALAPRIL
     Indication: Product used for unknown indication

REACTIONS (2)
  - Hepatic failure [Unknown]
  - Hepatic necrosis [Unknown]

NARRATIVE: CASE EVENT DATE: 20110103
